FAERS Safety Report 19860926 (Version 1)
Quarter: 2021Q3

REPORT INFORMATION
  Report Type: Spontaneous
  Country: US (occurrence: US)
  Receive Date: 20210920
  Receipt Date: 20210920
  Transmission Date: 20211014
  Serious: Yes (Other)
  Sender: FDA-Public Use
  Company Number: US-PFIZER INC-202101193352

PATIENT
  Age: 6 Decade
  Sex: Male

DRUGS (7)
  1. PREGABALIN. [Suspect]
     Active Substance: PREGABALIN
     Indication: FACIAL PAIN
     Dosage: UNK
  2. ZOLPIDEM TARTRATE. [Interacting]
     Active Substance: ZOLPIDEM TARTRATE
     Indication: FACIAL PAIN
     Dosage: UNK
  3. CARISOPRODOL. [Interacting]
     Active Substance: CARISOPRODOL
     Indication: FACIAL PAIN
     Dosage: UNK
  4. CANNABIDIOL [Interacting]
     Active Substance: CANNABIDIOL
     Indication: FACIAL PAIN
  5. DRONABINOL. [Interacting]
     Active Substance: DRONABINOL
     Indication: FACIAL PAIN
     Dosage: UNK
  6. HYDROCODONE/ACETAMINOPHEN [Interacting]
     Active Substance: ACETAMINOPHEN\HYDROCODONE
     Indication: FACIAL PAIN
     Dosage: 10/325 MG EVERY 4 HOURS AS NEEDED
  7. OXYCODONE [Interacting]
     Active Substance: OXYCODONE
     Indication: FACIAL PAIN
     Dosage: 30 MG, EVERY 8 HOURS

REACTIONS (2)
  - Overdose [Unknown]
  - Drug interaction [Unknown]
